FAERS Safety Report 15346217 (Version 1)
Quarter: 2018Q3

REPORT INFORMATION
  Report Type: Report from Study
  Country: ES (occurrence: ES)
  Receive Date: 20180904
  Receipt Date: 20180904
  Transmission Date: 20181010
  Serious: Yes (Hospitalization, Other)
  Sender: FDA-Public Use
  Company Number: ES-ACCORD-071304

PATIENT
  Age: 53 Year
  Sex: Male

DRUGS (6)
  1. VOLTAREN [Concomitant]
     Active Substance: DICLOFENAC SODIUM
     Indication: BACK PAIN
     Route: 030
     Dates: start: 20160617, end: 20160617
  2. PREDNISONE. [Concomitant]
     Active Substance: PREDNISONE
     Indication: LIVER TRANSPLANT
     Route: 048
     Dates: start: 20160603, end: 20160621
  3. TACROLIMUS. [Suspect]
     Active Substance: TACROLIMUS
     Indication: LIVER TRANSPLANT
     Route: 048
     Dates: start: 20160612, end: 20160620
  4. CELLCEPT [Interacting]
     Active Substance: MYCOPHENOLATE MOFETIL\MYCOPHENOLATE MOFETIL HYDROCHLORIDE
     Indication: LIVER TRANSPLANT
     Route: 048
     Dates: start: 20160609
  5. VOLTAREN [Interacting]
     Active Substance: DICLOFENAC SODIUM
     Indication: BACK PAIN
     Route: 048
     Dates: start: 20160618, end: 20160620
  6. FAMVIR [Interacting]
     Active Substance: FAMCICLOVIR
     Dosage: 21 TABLETS
     Route: 048
     Dates: start: 20160616, end: 20160623

REACTIONS (2)
  - Drug interaction [Unknown]
  - Acute kidney injury [Recovering/Resolving]

NARRATIVE: CASE EVENT DATE: 20160618
